FAERS Safety Report 6391475-X (Version None)
Quarter: 2009Q4

REPORT INFORMATION
  Report Type: 
  Country: None (occurrence: None)
  Receive Date: 20091007
  Receipt Date: 20090923
  Transmission Date: 20100525
  Serious: Yes (Other)
  Sender: FDA-Public Use
  Company Number: DE-PFIZER INC-2009272721

PATIENT
  Age: 33 Year

DRUGS (2)
  1. SUTENT [Suspect]
     Indication: RENAL CANCER METASTATIC
     Dosage: 50 MG, UNK
     Route: 048
     Dates: start: 20090710, end: 20090723
  2. SUTENT [Suspect]
     Dosage: 50 MG, UNK
     Route: 048
     Dates: start: 20090821, end: 20090902

REACTIONS (9)
  - ARTHRALGIA [None]
  - DIZZINESS [None]
  - EYELID OEDEMA [None]
  - HEADACHE [None]
  - HYPOTHYROIDISM [None]
  - NAUSEA [None]
  - ORAL HERPES [None]
  - OVARIAN CYST [None]
  - RASH [None]
